FAERS Safety Report 13816097 (Version 1)
Quarter: 2017Q3

REPORT INFORMATION
  Report Type: Spontaneous
  Country: US (occurrence: US)
  Receive Date: 20170731
  Receipt Date: 20170731
  Transmission Date: 20171127
  Serious: No
  Sender: FDA-Public Use
  Company Number: US-JNJFOC-20161202946

PATIENT
  Age: 53 Year
  Sex: Female
  Weight: 58.06 kg

DRUGS (2)
  1. ZYRTEC [Suspect]
     Active Substance: CETIRIZINE HYDROCHLORIDE
     Indication: RHINORRHOEA
     Dosage: FOR TWO DAYS
     Route: 048
     Dates: start: 20161129, end: 20161130
  2. ZYRTEC [Suspect]
     Active Substance: CETIRIZINE HYDROCHLORIDE
     Indication: LACRIMATION INCREASED
     Dosage: FOR TWO DAYS
     Route: 048
     Dates: start: 20161129, end: 20161130

REACTIONS (1)
  - Drug ineffective [Unknown]
